FAERS Safety Report 20165828 (Version 1)
Quarter: 2021Q4

REPORT INFORMATION
  Report Type: Spontaneous
  Country: CO (occurrence: CO)
  Receive Date: 20211209
  Receipt Date: 20211209
  Transmission Date: 20220304
  Serious: No
  Sender: FDA-Public Use
  Company Number: CO-PFIZER INC-2021027865

PATIENT
  Age: 6 Year
  Sex: Male

DRUGS (1)
  1. GENOTROPIN [Suspect]
     Active Substance: SOMATROPIN
     Dosage: 0.6 MG
     Route: 058

REACTIONS (5)
  - Drug dose omission by device [Unknown]
  - Device use error [Unknown]
  - Device breakage [Unknown]
  - Device leakage [Unknown]
  - Device issue [Unknown]

NARRATIVE: CASE EVENT DATE: 20210107
